FAERS Safety Report 7585498-2 (Version None)
Quarter: 2011Q2

REPORT INFORMATION
  Report Type: 
  Country: None (occurrence: None)
  Receive Date: 20110628
  Receipt Date: 20110628
  Transmission Date: 20111010
  Serious: Yes (Disabling)
  Sender: FDA-Public Use
  Company Number: None

PATIENT
  Sex: Male
  Weight: 15 kg

DRUGS (1)
  1. LINEZOLID [Suspect]
     Indication: MASTOIDITIS
     Dosage: 145 MG Q 8 H ORAL
     Route: 048
     Dates: start: 20100511, end: 20100527

REACTIONS (2)
  - OPTIC NEURITIS [None]
  - VISION BLURRED [None]
